FAERS Safety Report 26191723 (Version 1)
Quarter: 2025Q4

REPORT INFORMATION
  Report Type: Spontaneous
  Country: ME (occurrence: ME)
  Receive Date: 20251223
  Receipt Date: 20251223
  Transmission Date: 20260118
  Serious: Yes (Other)
  Sender: BAYER HEALTHCARE PHARMACEUTICALS INC.
  Company Number: ME-BAYER-2025A166497

PATIENT
  Age: 69 Year
  Sex: Male

DRUGS (18)
  1. NUBEQA [Suspect]
     Active Substance: DAROLUTAMIDE
     Dosage: UNK
     Dates: start: 20250303
  2. NUBEQA [Suspect]
     Active Substance: DAROLUTAMIDE
     Dosage: UNK
  3. NUBEQA [Suspect]
     Active Substance: DAROLUTAMIDE
     Dosage: UNK
  4. NUBEQA [Suspect]
     Active Substance: DAROLUTAMIDE
     Dosage: UNK
  5. NUBEQA [Suspect]
     Active Substance: DAROLUTAMIDE
     Dosage: UNK
  6. NUBEQA [Suspect]
     Active Substance: DAROLUTAMIDE
     Dosage: UNK
  7. DOCETAXEL [Concomitant]
     Active Substance: DOCETAXEL
     Dosage: UNK
     Dates: start: 20250303
  8. DOCETAXEL [Concomitant]
     Active Substance: DOCETAXEL
     Dosage: UNK
  9. DOCETAXEL [Concomitant]
     Active Substance: DOCETAXEL
     Dosage: UNK
  10. DOCETAXEL [Concomitant]
     Active Substance: DOCETAXEL
     Dosage: UNK
  11. DOCETAXEL [Concomitant]
     Active Substance: DOCETAXEL
     Dosage: UNK
  12. DOCETAXEL [Concomitant]
     Active Substance: DOCETAXEL
     Dosage: UNK
  13. GONADORELIN [Concomitant]
     Active Substance: GONADORELIN
     Dosage: UNK
     Dates: start: 20250303
  14. GONADORELIN [Concomitant]
     Active Substance: GONADORELIN
     Dosage: UNK
  15. GONADORELIN [Concomitant]
     Active Substance: GONADORELIN
     Dosage: UNK
  16. GONADORELIN [Concomitant]
     Active Substance: GONADORELIN
     Dosage: UNK
  17. GONADORELIN [Concomitant]
     Active Substance: GONADORELIN
     Dosage: UNK
  18. GONADORELIN [Concomitant]
     Active Substance: GONADORELIN
     Dosage: UNK

REACTIONS (6)
  - Metastases to spine [None]
  - Metastases to bone [None]
  - Prostatic specific antigen increased [Recovering/Resolving]
  - Dysuria [None]
  - Pelvic pain [None]
  - Pain in extremity [None]

NARRATIVE: CASE EVENT DATE: 20250101
